FAERS Safety Report 11251281 (Version 1)
Quarter: 2015Q3

REPORT INFORMATION
  Report Type: Spontaneous
  Country: US (occurrence: US)
  Receive Date: 20150708
  Receipt Date: 20150708
  Transmission Date: 20151125
  Serious: No
  Sender: FDA-Public Use
  Company Number: US-ELI_LILLY_AND_COMPANY-US201110006208

PATIENT
  Sex: Male

DRUGS (1)
  1. SYMBYAX [Suspect]
     Active Substance: FLUOXETINE HYDROCHLORIDE\OLANZAPINE
     Indication: BIPOLAR DISORDER
     Dosage: 12/25 MG, QD
     Dates: start: 2009, end: 201109

REACTIONS (6)
  - Anxiety [Unknown]
  - Weight increased [Unknown]
  - Discomfort [Unknown]
  - Hallucination, auditory [Unknown]
  - Insomnia [Unknown]
  - Drug withdrawal syndrome [Unknown]
